FAERS Safety Report 13225944 (Version 1)
Quarter: 2017Q1

REPORT INFORMATION
  Report Type: Spontaneous
  Country: US (occurrence: US)
  Receive Date: 20170210
  Receipt Date: 20170210
  Transmission Date: 20170428
  Serious: No
  Sender: FDA-Public Use
  Company Number: None

PATIENT
  Age: 56 Year
  Sex: Female
  Weight: 85.5 kg

DRUGS (1)
  1. ATR SALINE NASAL MIST [Suspect]
     Active Substance: SODIUM CHLORIDE
     Indication: NASOPHARYNGITIS
     Dosage: ?          QUANTITY:1 1 SPRAY;?
     Route: 045
     Dates: start: 20170210, end: 20170210

REACTIONS (4)
  - Pruritus [None]
  - Feeling abnormal [None]
  - Cough [None]
  - Throat irritation [None]

NARRATIVE: CASE EVENT DATE: 20170210
